FAERS Safety Report 6997510-X (Version None)
Quarter: 2010Q3

REPORT INFORMATION
  Report Type: 
  Country: None (occurrence: None)
  Receive Date: 20100918
  Receipt Date: 20091016
  Transmission Date: 20110219
  Serious: No
  Sender: FDA-Public Use
  Company Number: US-WYE-H11728609

PATIENT
  Sex: Female

DRUGS (2)
  1. PREMPRO [Suspect]
     Indication: HORMONE REPLACEMENT THERAPY
     Dosage: 0.45MG/1.5MG DAILY
     Route: 048
     Dates: start: 20070101
  2. XANAX [Concomitant]

REACTIONS (10)
  - ABDOMINAL PAIN [None]
  - BALANCE DISORDER [None]
  - COORDINATION ABNORMAL [None]
  - DIARRHOEA [None]
  - FATIGUE [None]
  - HEART RATE INCREASED [None]
  - MIGRAINE [None]
  - MOOD SWINGS [None]
  - PALPITATIONS [None]
  - VISION BLURRED [None]
